FAERS Safety Report 4631887-5 (Version None)
Quarter: 2005Q2

REPORT INFORMATION
  Report Type: 
  Country: None (occurrence: None)
  Receive Date: 20050411
  Receipt Date: 20050404
  Transmission Date: 20051028
  Serious: Yes (Hospitalization, Other)
  Sender: FDA-Public Use
  Company Number: US-BRISTOL-MYERS SQUIBB COMPANY-12926242

PATIENT
  Age: 46 Year
  Sex: Male

DRUGS (1)
  1. SERZONE [Suspect]

REACTIONS (2)
  - HEPATOCELLULAR DAMAGE [None]
  - LIVER TRANSPLANT [None]
